FAERS Safety Report 6983303-6 (Version None)
Quarter: 2010Q3

REPORT INFORMATION
  Report Type: 
  Country: None (occurrence: None)
  Receive Date: 20100914
  Receipt Date: 20100716
  Transmission Date: 20110219
  Serious: No
  Sender: FDA-Public Use
  Company Number: US-PFIZER INC-2010089806

PATIENT

DRUGS (1)
  1. LYRICA [Suspect]
     Dosage: UNK

REACTIONS (2)
  - HYPERSENSITIVITY [None]
  - URTICARIA [None]
